FAERS Safety Report 8248808-9 (Version None)
Quarter: 2012Q2

REPORT INFORMATION
  Report Type: 
  Country: None (occurrence: None)
  Receive Date: 20120401
  Receipt Date: 20120323
  Transmission Date: 20120825
  Serious: Yes (Other)
  Sender: FDA-Public Use
  Company Number: PHHY2012FR025580

PATIENT
  Age: 38 Year
  Sex: Female

DRUGS (4)
  1. PREDNISONE [Suspect]
  2. SIROLIMUS [Suspect]
  3. MYCOPHENOLATE MOFETIL [Suspect]
  4. TACROLIMUS [Suspect]

REACTIONS (7)
  - CHOLANGITIS [None]
  - RESPIRATORY TRACT INFECTION BACTERIAL [None]
  - BLOOD TRIGLYCERIDES INCREASED [None]
  - THROMBOTIC MICROANGIOPATHY [None]
  - RENAL IMPAIRMENT [None]
  - HYPERTENSION [None]
  - CERVIX CARCINOMA STAGE 0 [None]
